FAERS Safety Report 15150287 (Version 1)
Quarter: 2018Q3

REPORT INFORMATION
  Report Type: Spontaneous
  Country: ES (occurrence: ES)
  Receive Date: 20180716
  Receipt Date: 20180716
  Transmission Date: 20181010
  Serious: Yes (Hospitalization)
  Sender: FDA-Public Use
  Company Number: ES-US WORLDMEDS, LLC-STA_00017722

PATIENT
  Sex: Female

DRUGS (6)
  1. APOMORPHINE HYDROCHLORIDE [Suspect]
     Active Substance: APOMORPHINE HYDROCHLORIDE
     Indication: PARKINSON^S DISEASE
     Dosage: 2MG/H INCREASING 1MG EVERY 3 OR 4 DAYS TO 5MG/H
     Dates: start: 20150202
  2. ROTIGOTINE [Concomitant]
     Active Substance: ROTIGOTINE
  3. SINEMET PLUS [Concomitant]
     Active Substance: CARBIDOPA\LEVODOPA
  4. RIVOTRIL [Concomitant]
     Active Substance: CLONAZEPAM
  5. AZILECT [Concomitant]
     Active Substance: RASAGILINE MESYLATE
  6. APO GO PEN [Concomitant]

REACTIONS (7)
  - Dysphagia [Recovered/Resolved]
  - Pulmonary oedema [Recovered/Resolved]
  - Respiratory tract infection [Recovered/Resolved]
  - Sleep disorder [Recovered/Resolved]
  - Renal failure [Recovered/Resolved]
  - Myocardial infarction [Recovered/Resolved]
  - Disorientation [Recovered/Resolved]

NARRATIVE: CASE EVENT DATE: 20150314
